FAERS Safety Report 8957180 (Version 3)
Quarter: 2013Q1

REPORT INFORMATION
  Report Type: Report from Study
  Country: CA (occurrence: CA)
  Receive Date: 20121210
  Receipt Date: 20130320
  Transmission Date: 20140127
  Serious: Yes (Other)
  Sender: FDA-Public Use
  Company Number: CA-ROCHE-GNE226859

PATIENT
  Sex: Female
  Weight: 62.07 kg

DRUGS (9)
  1. OMALIZUMAB [Suspect]
     Indication: ASTHMA
     Dosage: 225 UNK, Q2W
     Route: 058
     Dates: start: 20050921, end: 20051129
  2. OMALIZUMAB [Suspect]
     Dosage: 225 MG, Q2W
     Route: 058
     Dates: end: 20060619
  3. OMALIZUMAB [Suspect]
     Dosage: 225 MG, Q2W
     Route: 058
     Dates: end: 20110201
  4. OMALIZUMAB [Suspect]
     Route: 058
     Dates: start: 20090407
  5. OMALIZUMAB [Suspect]
     Route: 058
     Dates: start: 201212, end: 20130307
  6. PREDNISONE [Concomitant]
     Indication: PRODUCT USED FOR UNKNOWN INDICATION
  7. SYMBICORT [Concomitant]
     Indication: PRODUCT USED FOR UNKNOWN INDICATION
  8. FOSAMAX [Concomitant]
     Indication: PRODUCT USED FOR UNKNOWN INDICATION
  9. CARBOCAL D [Concomitant]

REACTIONS (9)
  - Eczema [Not Recovered/Not Resolved]
  - Pruritus [Unknown]
  - Rash [Not Recovered/Not Resolved]
  - Pain in extremity [Not Recovered/Not Resolved]
  - Sputum discoloured [Unknown]
  - Erythema [Unknown]
  - Traumatic haemorrhage [Unknown]
  - Traumatic haemorrhage [Unknown]
  - Incorrect dose administered [Unknown]
